FAERS Safety Report 10927761 (Version 1)
Quarter: 2015Q1

REPORT INFORMATION
  Report Type: Spontaneous
  Country: US (occurrence: US)
  Receive Date: 20150319
  Receipt Date: 20150319
  Transmission Date: 20150721
  Serious: No
  Sender: FDA-Public Use
  Company Number: US-AMGEN-USASP2015022727

PATIENT
  Age: 49 Year
  Sex: Female

DRUGS (2)
  1. ENBREL [Suspect]
     Active Substance: ETANERCEPT
     Indication: PRODUCT USED FOR UNKNOWN INDICATION
     Dosage: UNK
     Route: 065
     Dates: start: 201304, end: 2013
  2. METHOTREXATE [Concomitant]
     Active Substance: METHOTREXATE
     Dosage: UNK
     Dates: start: 201210

REACTIONS (7)
  - Fatigue [Unknown]
  - Sleep disorder [Unknown]
  - Condition aggravated [Unknown]
  - Dysstasia [Unknown]
  - Asthenia [Unknown]
  - Musculoskeletal discomfort [Unknown]
  - Therapeutic response decreased [Unknown]
